FAERS Safety Report 25934475 (Version 2)
Quarter: 2025Q4

REPORT INFORMATION
  Report Type: Spontaneous
  Country: US (occurrence: US)
  Receive Date: 20251017
  Receipt Date: 20251224
  Transmission Date: 20260118
  Serious: Yes (Other)
  Sender: NOVARTIS
  Company Number: US-002147023-NVSC2025US159901

PATIENT
  Age: 10 Year
  Sex: Male

DRUGS (25)
  1. CYCLOSPORINE [Suspect]
     Active Substance: CYCLOSPORINE
     Indication: Chronic spontaneous urticaria
     Dosage: 75 MG, BID (4 MG/KG)
     Route: 065
  2. CYCLOSPORINE [Suspect]
     Active Substance: CYCLOSPORINE
     Dosage: 7 MG/KG, QD
     Route: 065
  3. CYCLOSPORINE [Suspect]
     Active Substance: CYCLOSPORINE
     Dosage: 5 MG/KG, QD
     Route: 065
  4. CYCLOSPORINE [Suspect]
     Active Substance: CYCLOSPORINE
     Dosage: 5 MG/KG, QD
     Route: 065
  5. CYCLOSPORINE [Suspect]
     Active Substance: CYCLOSPORINE
     Dosage: 3.6 MG/KG, QD
     Route: 065
  6. PREDNISONE [Suspect]
     Active Substance: PREDNISONE
     Indication: Chronic spontaneous urticaria
     Dosage: 60 MG
     Route: 065
  7. PREDNISONE [Suspect]
     Active Substance: PREDNISONE
     Dosage: 20 MG, QD (TAPERED)
     Route: 065
  8. PREDNISONE [Suspect]
     Active Substance: PREDNISONE
     Dosage: 60 MG, QD (TAPER (60-10 MG)
     Route: 065
  9. BASILIXIMAB [Suspect]
     Active Substance: BASILIXIMAB
     Indication: Dermatitis atopic
     Dosage: 20 MG (AT DAYS 0, 21, AND 42, INFUSION)
     Route: 042
  10. BASILIXIMAB [Suspect]
     Active Substance: BASILIXIMAB
     Dosage: 20 MG, Q3W (FOR THREE DOSES, INFUSION)
     Route: 042
  11. BASILIXIMAB [Suspect]
     Active Substance: BASILIXIMAB
     Dosage: 20 MG, (SPACING TO EVERY 6WEEKS FOR TWO DOSES, INFUSION)
     Route: 042
  12. OMALIZUMAB [Suspect]
     Active Substance: OMALIZUMAB
     Indication: Chronic spontaneous urticaria
     Route: 065
  13. LIDOCAINE [Suspect]
     Active Substance: LIDOCAINE
     Indication: Chronic spontaneous urticaria
     Dosage: UNK (TOPICAL)
     Route: 065
  14. MONTELUKAST [Suspect]
     Active Substance: MONTELUKAST
     Indication: Chronic spontaneous urticaria
     Route: 065
  15. ANAKINRA [Suspect]
     Active Substance: ANAKINRA
     Indication: Dermatitis atopic
     Dosage: 100 MG, QD
     Route: 065
  16. ANAKINRA [Suspect]
     Active Substance: ANAKINRA
     Dosage: 100 MG, QD (0.67 ML, APPROXIMATELY 4MONTHS)
     Route: 065
  17. CLOBETASOL [Suspect]
     Active Substance: CLOBETASOL
     Indication: Dermatitis atopic
     Dosage: 0.05 %, BID
     Route: 065
  18. DUPILUMAB [Suspect]
     Active Substance: DUPILUMAB
     Indication: Dermatitis atopic
     Dosage: 200 MG, Q2W
     Route: 065
  19. DUPILUMAB [Suspect]
     Active Substance: DUPILUMAB
     Dosage: 400 MG, Q2W (FOR APPROXIMATELY 6 MONTHS)
     Route: 065
  20. GABAPENTIN [Suspect]
     Active Substance: GABAPENTIN
     Indication: Dermatitis atopic
     Dosage: 100 MG, QD (NIGHTLY)
     Route: 065
  21. GABAPENTIN [Suspect]
     Active Substance: GABAPENTIN
     Dosage: 400 MG, QD (NIGHTLY)
     Route: 065
  22. TACROLIMUS [Suspect]
     Active Substance: TACROLIMUS
     Indication: Dermatitis atopic
     Dosage: 0.1 %, BID (AS NEEDED)
     Route: 065
  23. UPADACITINIB [Suspect]
     Active Substance: UPADACITINIB
     Indication: Dermatitis atopic
     Dosage: 15 MG, QD
     Route: 065
  24. UPADACITINIB [Suspect]
     Active Substance: UPADACITINIB
     Dosage: 30 MG, QD
     Route: 065
  25. CETIRIZINE [Concomitant]
     Active Substance: CETIRIZINE HYDROCHLORIDE
     Indication: Product used for unknown indication
     Dosage: 10 MG, QD
     Route: 065

REACTIONS (6)
  - Nephropathy toxic [Unknown]
  - Viral infection [Unknown]
  - Urticaria [Recovered/Resolved]
  - Dermatitis atopic [Recovered/Resolved]
  - Treatment failure [Unknown]
  - Off label use [Unknown]
